FAERS Safety Report 12425439 (Version 1)
Quarter: 2016Q2

REPORT INFORMATION
  Report Type: Spontaneous
  Country: US (occurrence: US)
  Receive Date: 20160601
  Receipt Date: 20160601
  Transmission Date: 20160815
  Serious: No
  Sender: FDA-Public Use
  Company Number: US-009507513-1605USA010738

PATIENT
  Sex: Male

DRUGS (1)
  1. DULERA [Suspect]
     Active Substance: FORMOTEROL FUMARATE DIHYDRATE\MOMETASONE FUROATE
     Dosage: 200 MCG / 2 PUFFS TWICE DAILY
     Route: 055
     Dates: start: 201508

REACTIONS (3)
  - Drug dose omission [Unknown]
  - No adverse event [Unknown]
  - Product packaging issue [Unknown]
